FAERS Safety Report 13951954 (Version 2)
Quarter: 2018Q3

REPORT INFORMATION
  Report Type: Report from Study
  Country: CA (occurrence: CA)
  Receive Date: 20170910
  Receipt Date: 20180731
  Transmission Date: 20181010
  Serious: Yes (Hospitalization, Other)
  Sender: FDA-Public Use
  Company Number: CA-AMGEN-CANSL2017134564

PATIENT
  Age: 20 Year
  Sex: Female

DRUGS (1)
  1. ENBREL [Suspect]
     Active Substance: ETANERCEPT
     Indication: ANKYLOSING SPONDYLITIS
     Dosage: 50 MG, UNK
     Route: 065
     Dates: start: 201509

REACTIONS (12)
  - Pyrexia [Unknown]
  - Pharyngitis streptococcal [Unknown]
  - Oropharyngeal pain [Unknown]
  - Injection site reaction [Unknown]
  - Tonsillar inflammation [Unknown]
  - Syncope [Unknown]
  - White blood cell count increased [Unknown]
  - Bowel movement irregularity [Unknown]
  - Pharyngitis [Unknown]
  - Pharyngeal inflammation [Unknown]
  - Lymph node pain [Unknown]
  - Abdominal tenderness [Unknown]

NARRATIVE: CASE EVENT DATE: 201708
